FAERS Safety Report 5856679-0 (Version None)
Quarter: 2008Q3

REPORT INFORMATION
  Report Type: 
  Country: None (occurrence: None)
  Receive Date: 20080825
  Receipt Date: 20080813
  Transmission Date: 20090109
  Serious: Yes (Other)
  Sender: FDA-Public Use
  Company Number: US-PFIZER INC-2008008692

PATIENT
  Age: 62 Year
  Sex: Female
  Weight: 65.9 kg

DRUGS (5)
  1. CHANTIX [Suspect]
     Indication: SMOKING CESSATION THERAPY
     Dates: start: 20071001, end: 20071201
  2. PRILOSEC [Concomitant]
  3. FOLIC ACID [Concomitant]
  4. HYDROCHLOROTHIAZIDE [Concomitant]
  5. ALLERGY MEDICATION [Concomitant]

REACTIONS (5)
  - EUPHORIC MOOD [None]
  - INCORRECT DOSE ADMINISTERED [None]
  - MENIERE'S DISEASE [None]
  - NAUSEA [None]
  - WRONG TECHNIQUE IN DRUG USAGE PROCESS [None]
